FAERS Safety Report 6260896-8 (Version None)
Quarter: 2009Q3

REPORT INFORMATION
  Report Type: 
  Country: None (occurrence: None)
  Receive Date: 20090707
  Receipt Date: 20090623
  Transmission Date: 20100115
  Serious: No
  Sender: FDA-Public Use
  Company Number: 20097004

PATIENT

DRUGS (1)
  1. LIORESAL [Suspect]
     Indication: MUSCLE SPASTICITY
     Dosage: MCG, DAILY, INTRATHECAL
     Route: 037

REACTIONS (8)
  - CONFUSIONAL STATE [None]
  - DELIRIUM [None]
  - DELUSION [None]
  - DEVICE ELECTRICAL FINDING [None]
  - HALLUCINATION [None]
  - INCOHERENT [None]
  - INSOMNIA [None]
  - WITHDRAWAL SYNDROME [None]
